FAERS Safety Report 24872709 (Version 2)
Quarter: 2025Q1

REPORT INFORMATION
  Report Type: Spontaneous
  Country: DE (occurrence: DE)
  Receive Date: 20250122
  Receipt Date: 20250131
  Transmission Date: 20250408
  Serious: Yes (Death, Other)
  Sender: ETON PHARMACEUTICALS, INC
  Company Number: DE-ETON PHARMACEUTICALS, INC-2022ETO000342

PATIENT
  Age: 19 Year
  Sex: Male
  Weight: 58 kg

DRUGS (2)
  1. HYDROCORTISONE [Suspect]
     Active Substance: HYDROCORTISONE
     Indication: Renal failure
     Route: 048
     Dates: start: 202202, end: 20221006
  2. RINVOQ [Suspect]
     Active Substance: UPADACITINIB
     Indication: Colitis ulcerative
     Route: 048
     Dates: start: 20220923, end: 20221006

REACTIONS (3)
  - Sudden death [Fatal]
  - Product use issue [Unknown]
  - Product use in unapproved indication [Unknown]

NARRATIVE: CASE EVENT DATE: 20221007
